FAERS Safety Report 9949073 (Version 1)
Quarter: 2014Q1

REPORT INFORMATION
  Report Type: Spontaneous
  Country: US (occurrence: None)
  Receive Date: 20140122
  Receipt Date: 20140122
  Transmission Date: 20141002
  Serious: Yes (Other)
  Sender: FDA-Public Use
  Company Number: AEGR000187

PATIENT
  Age: 50 Year
  Sex: Male

DRUGS (5)
  1. JUXTAPID [Suspect]
     Route: 048
     Dates: start: 2013
  2. NIACIN [Concomitant]
  3. FISH OIL [Concomitant]
  4. B-COMPLEX [Concomitant]
  5. CALCIUM +D [Concomitant]

REACTIONS (8)
  - Dyspnoea [None]
  - Muscle spasms [None]
  - Musculoskeletal stiffness [None]
  - Anxiety [None]
  - Off label use [None]
  - Abdominal distension [None]
  - Constipation [None]
  - Psychomotor hyperactivity [None]
